FAERS Safety Report 14704834 (Version 2)
Quarter: 2018Q2

REPORT INFORMATION
  Report Type: Spontaneous
  Country: PL (occurrence: PL)
  Receive Date: 20180402
  Receipt Date: 20180514
  Transmission Date: 20180711
  Serious: Yes (Hospitalization, Other)
  Sender: FDA-Public Use
  Company Number: PL-TEVA-812120ISR

PATIENT
  Age: 24 Year
  Sex: Male

DRUGS (14)
  1. PACLITAXEL. [Suspect]
     Active Substance: PACLITAXEL
     Indication: TESTIS CANCER
     Route: 065
     Dates: start: 20160901, end: 20161101
  2. IFOSFAMIDE. [Suspect]
     Active Substance: IFOSFAMIDE
     Indication: TESTIS CANCER
     Route: 065
     Dates: start: 201609, end: 201611
  3. MEROPENEM. [Concomitant]
     Active Substance: MEROPENEM
     Indication: FEBRILE NEUTROPENIA
     Route: 065
     Dates: start: 201605
  4. ADDAMEL N [Concomitant]
     Active Substance: CHROMIC CHLORIDE\CUPROUS CHLORIDE\FERRIC CHLORIDE\MANGANESE CHLORIDE\POTASSIUM IODIDE\SODIUM FLUORIDE\SODIUM MOLYBDATE DIHYDRATE\SODIUM SELENITE\ZINC CHLORIDE
     Route: 065
     Dates: start: 2016
  5. HEPARIN [Concomitant]
     Active Substance: HEPARIN SODIUM
     Dosage: LOW MOLECULAR WEIGHT
     Route: 065
  6. HOLOXAN [Suspect]
     Active Substance: IFOSFAMIDE
     Indication: TESTICULAR CANCER METASTATIC
     Dosage: ADEQUATE DOSES FOR RENAL FUNCTION.
     Route: 065
  7. VITALIPID N [Concomitant]
     Active Substance: ERGOCALCIFEROL\PHYTONADIONE\TOCOPHEROL\VITAMIN A PALMITATE
     Route: 065
  8. CARBOPLATIN. [Suspect]
     Active Substance: CARBOPLATIN
     Indication: TESTIS CANCER
     Dosage: AT A DOSE CALCULATED USING CALVERT^S FORMULA
     Route: 065
     Dates: start: 201605, end: 2016
  9. BLEOMYCIN [Suspect]
     Active Substance: BLEOMYCIN SULFATE
     Indication: TESTIS CANCER
     Dosage: DOSES ADEQUATE TO THE RENAL FUNCTION. BLEOMYCIN 15000IU POWDER FOR SOLUTION FOR INJECTION/INFUSION.
     Route: 065
     Dates: start: 201605
  10. SOLUVIT N [Concomitant]
     Active Substance: VITAMINS
     Route: 065
  11. ETOPOSIDE. [Suspect]
     Active Substance: ETOPOSIDE
     Indication: TESTIS CANCER
     Dosage: DOSES ADEQUATE TO THE RENAL FUNCTION
     Route: 065
  12. CISPLATIN. [Suspect]
     Active Substance: CISPLATIN
     Indication: TESTIS CANCER
     Dosage: DOSES ADEQUATE TO THE RENAL FUNCTION
     Route: 065
     Dates: start: 201609, end: 201611
  13. VANCOMYCIN [Concomitant]
     Active Substance: VANCOMYCIN
     Indication: FEBRILE NEUTROPENIA
     Route: 065
     Dates: start: 201605
  14. KCL [Concomitant]
     Active Substance: POTASSIUM CHLORIDE
     Dosage: 60 MEQ
     Route: 065

REACTIONS (7)
  - Febrile neutropenia [Unknown]
  - Thrombocytopenia [Unknown]
  - Blood disorder [Unknown]
  - Blood creatinine increased [Unknown]
  - Off label use [Unknown]
  - Renal failure [Unknown]
  - Anaemia [Unknown]
